FAERS Safety Report 11632313 (Version 2)
Quarter: 2015Q4

REPORT INFORMATION
  Report Type: Spontaneous
  Country: GB (occurrence: GB)
  Receive Date: 20151015
  Receipt Date: 20151015
  Transmission Date: 20160304
  Serious: Yes (Other)
  Sender: FDA-Public Use
  Company Number: GB-ACTAVIS-2015-21960

PATIENT
  Age: 66 Year
  Sex: Male
  Weight: 114 kg

DRUGS (3)
  1. CARBAMAZEPINE (UNKNOWN) [Suspect]
     Active Substance: CARBAMAZEPINE
     Indication: MOOD ALTERED
     Dosage: 700 MG, DAILY (300 MG DURING DAY, 400 MG AT NIGHT; STARTED OVER 30 YEARS AGO)
     Route: 065
  2. VALSARTAN. [Concomitant]
     Active Substance: VALSARTAN
     Indication: HYPERTENSION
     Dosage: 80 MG, UNK (TAKEN FOR YEARS)
     Route: 065
  3. AMLODIPINE [Suspect]
     Active Substance: AMLODIPINE BESYLATE
     Indication: HYPERTENSION
     Dosage: 5 MG, QAM (STARTED 2-3 MONTHS AGO)
     Route: 065

REACTIONS (2)
  - Enuresis [Not Recovered/Not Resolved]
  - Depressed mood [Not Recovered/Not Resolved]
